FAERS Safety Report 7202200-4 (Version None)
Quarter: 2010Q4

REPORT INFORMATION
  Report Type: 
  Country: None (occurrence: None)
  Receive Date: 20101229
  Receipt Date: 20101216
  Transmission Date: 20110411
  Serious: Yes (Hospitalization)
  Sender: FDA-Public Use
  Company Number: PHHY2010DE59287

PATIENT
  Sex: Male

DRUGS (4)
  1. ZOMETA [Suspect]
     Dosage: 4 MG, PER 5 ML
     Route: 042
     Dates: start: 20080919, end: 20100722
  2. PROFACT - SLOW RELEASE [Concomitant]
     Indication: PROSTATE CANCER
     Dosage: EVERY 3 MONTH
     Route: 058
     Dates: start: 20080911, end: 20100601
  3. DEGARELIX [Concomitant]
     Indication: PROSTATE CANCER
     Dosage: 80 MG, UNK
     Dates: start: 20100628
  4. CALCIUM [Concomitant]
     Dosage: UNK
     Dates: start: 20080911

REACTIONS (8)
  - APHAGIA [None]
  - ORAL DISORDER [None]
  - OSTEONECROSIS OF JAW [None]
  - PAIN IN JAW [None]
  - SOFT TISSUE INFECTION [None]
  - STOMATITIS [None]
  - SURGERY [None]
  - SWELLING [None]
